FAERS Safety Report 6664180-X (Version None)
Quarter: 2010Q2

REPORT INFORMATION
  Report Type: 
  Country: None (occurrence: None)
  Receive Date: 20100401
  Receipt Date: 20100326
  Transmission Date: 20101027
  Serious: Yes (Other)
  Sender: FDA-Public Use
  Company Number: JP-PFIZER INC-2010040309

PATIENT
  Sex: Female

DRUGS (3)
  1. XALATAN [Suspect]
     Indication: NORMAL TENSION GLAUCOMA
     Dosage: UNK
     Route: 047
  2. HYALEIN [Concomitant]
     Route: 047
  3. HYPADIL [Concomitant]
     Route: 047

REACTIONS (3)
  - EYE IRRITATION [None]
  - HERPES ZOSTER [None]
  - VISUAL ACUITY REDUCED [None]
